FAERS Safety Report 5337684-X (Version None)
Quarter: 2007Q2

REPORT INFORMATION
  Report Type: 
  Country: None (occurrence: None)
  Receive Date: 20070315
  Receipt Date: 20060516
  Transmission Date: 20071010
  Serious: Yes (Other)
  Sender: FDA-Public Use
  Company Number: PHEH2006US04377

PATIENT
  Age: 51 Year
  Sex: Female

DRUGS (8)
  1. TRILEPTAL [Suspect]
     Indication: BIPOLAR DISORDER
     Dosage: 300 MG, BID, ORAL, 150 MG, BID, ORAL, 150 MG, QD, ORAL, 300 MG, BID ORAL
     Route: 048
     Dates: start: 20040101, end: 20050101
  2. TRILEPTAL [Suspect]
     Indication: BIPOLAR DISORDER
     Dosage: 300 MG, BID, ORAL, 150 MG, BID, ORAL, 150 MG, QD, ORAL, 300 MG, BID ORAL
     Route: 048
     Dates: start: 20050101, end: 20050101
  3. TRILEPTAL [Suspect]
     Indication: BIPOLAR DISORDER
     Dosage: 300 MG, BID, ORAL, 150 MG, BID, ORAL, 150 MG, QD, ORAL, 300 MG, BID ORAL
     Route: 048
     Dates: start: 20050101
  4. HYDROCHLOROTHIAZIDE [Suspect]
     Indication: FLUID RETENTION
     Dates: end: 20060301
  5. ATENOLOL [Concomitant]
  6. ATACAND [Concomitant]
  7. PAXIL [Concomitant]
  8. ALPRAZOLAM [Concomitant]

REACTIONS (3)
  - HYPONATRAEMIA [None]
  - MOOD ALTERED [None]
  - SWELLING [None]
